FAERS Safety Report 8826403 (Version 2)
Quarter: 2012Q4

REPORT INFORMATION
  Report Type: 
  Country: AU (occurrence: AU)
  Receive Date: 20121005
  Receipt Date: 20121015
  Transmission Date: 20130627
  Serious: Yes (Death)
  Sender: FDA-Public Use
  Company Number: PHHY2012AU077159

PATIENT
  Age: 80 Year
  Sex: Female

DRUGS (3)
  1. ACLASTA [Suspect]
     Dosage: 5 mg
     Route: 042
     Dates: start: 20090508
  2. ACLASTA [Suspect]
     Dosage: 5 mg
     Route: 042
     Dates: start: 20100628
  3. ACLASTA [Suspect]
     Dosage: 5 mg
     Route: 042
     Dates: start: 20110628

REACTIONS (2)
  - Gallbladder adenocarcinoma [Fatal]
  - Malaise [Unknown]
